FAERS Safety Report 5046162-7 (Version None)
Quarter: 2006Q2

REPORT INFORMATION
  Report Type: 
  Country: None (occurrence: None)
  Receive Date: 20060629
  Receipt Date: 20060615
  Transmission Date: 20061013
  Serious: Yes (Other)
  Sender: FDA-Public Use
  Company Number: 2006RR-02667

PATIENT
  Age: 72 Year
  Sex: Female

DRUGS (1)
  1. AMOXICILLIN + CLAVULANATE POTASSIUM [Suspect]
     Indication: PNEUMONIA BACTERIAL
     Dosage: 500 MG, BID,

REACTIONS (2)
  - DRUG ERUPTION [None]
  - TYPE IV HYPERSENSITIVITY REACTION [None]
